FAERS Safety Report 17540822 (Version 3)
Quarter: 2020Q4

REPORT INFORMATION
  Report Type: Spontaneous
  Country: US (occurrence: US)
  Receive Date: 20200313
  Receipt Date: 20201006
  Transmission Date: 20210113
  Serious: Yes (Other)
  Sender: FDA-Public Use
  Company Number: US-JNJFOC-20200303020

PATIENT
  Age: 24 Year
  Sex: Female
  Weight: 90.8 kg

DRUGS (5)
  1. REMICADE [Suspect]
     Active Substance: INFLIXIMAB
     Indication: CROHN^S DISEASE
     Route: 042
     Dates: end: 201911
  2. VITAMIN D                          /00107901/ [Concomitant]
     Active Substance: ERGOCALCIFEROL
  3. LEXAPRO [Concomitant]
     Active Substance: ESCITALOPRAM OXALATE
  4. FOLIC ACID. [Concomitant]
     Active Substance: FOLIC ACID
  5. NARCOSTINE [Concomitant]

REACTIONS (3)
  - Anal fistula [Not Recovered/Not Resolved]
  - Product dose omission issue [Unknown]
  - Anal abscess [Not Recovered/Not Resolved]

NARRATIVE: CASE EVENT DATE: 2020
